FAERS Safety Report 10174398 (Version 2)
Quarter: 2014Q2

REPORT INFORMATION
  Report Type: Spontaneous
  Country: JP (occurrence: JP)
  Receive Date: 20140515
  Receipt Date: 20140529
  Transmission Date: 20141212
  Serious: Yes (Hospitalization)
  Sender: FDA-Public Use
  Company Number: JP-TAKEDA-2014TJP005908

PATIENT
  Sex: 0

DRUGS (1)
  1. LANSAP 400 [Suspect]
     Dosage: 0.5 DF, BID
     Route: 048
     Dates: start: 201405

REACTIONS (1)
  - Hospitalisation [Unknown]
